FAERS Safety Report 8701575 (Version 2)
Quarter: 2012Q4

REPORT INFORMATION
  Report Type: 
  Country: US (occurrence: US)
  Receive Date: 20120803
  Receipt Date: 20121010
  Transmission Date: 20130627
  Serious: Yes (Hospitalization)
  Sender: FDA-Public Use
  Company Number: US-BIOGENIDEC-2012BI027731

PATIENT
  Age: 32 Year
  Sex: Female

DRUGS (17)
  1. TYSABRI [Suspect]
     Indication: MULTIPLE SCLEROSIS
     Route: 042
     Dates: start: 20120411, end: 20120615
  2. ALPRAZOLAM [Concomitant]
     Indication: ANXIETY
  3. ATORVASTATIN [Concomitant]
     Indication: BLOOD CHOLESTEROL INCREASED
  4. VITAMIN B12 [Concomitant]
  5. BUDESONIDE [Concomitant]
  6. CALCIUM [Concomitant]
  7. DICYCLOMINE [Concomitant]
  8. FLUTICASONE [Concomitant]
  9. NORCO [Concomitant]
     Indication: PAIN
  10. LISINOPRIL [Concomitant]
     Indication: HYPERTENSION
  11. PROMETHAZINE [Concomitant]
     Indication: NAUSEA
  12. SINGULAIR [Concomitant]
     Indication: ASTHMA
  13. SOMA [Concomitant]
     Indication: SLEEP DISORDER
  14. TRAMADOL [Concomitant]
  15. XOPENEX [Concomitant]
     Indication: ASTHMA
  16. ZOFRAN [Concomitant]
     Indication: NAUSEA
  17. ZYRTEC [Concomitant]
     Indication: MULTIPLE ALLERGIES

REACTIONS (1)
  - Anaphylactic reaction [Recovered/Resolved]
